FAERS Safety Report 14410851 (Version 1)
Quarter: 2018Q1

REPORT INFORMATION
  Report Type: Spontaneous
  Country: US (occurrence: US)
  Receive Date: 20180119
  Receipt Date: 20180119
  Transmission Date: 20180509
  Serious: No
  Sender: FDA-Public Use
  Company Number: US-ELI_LILLY_AND_COMPANY-US201801007327

PATIENT
  Sex: Female

DRUGS (2)
  1. PROGESTERONE. [Interacting]
     Active Substance: PROGESTERONE
     Indication: HOT FLUSH
  2. FORTEO [Suspect]
     Active Substance: TERIPARATIDE
     Indication: OSTEOPOROSIS
     Dosage: 20 UG, UNKNOWN
     Route: 058
     Dates: start: 20180109

REACTIONS (2)
  - Hot flush [Recovered/Resolved]
  - Drug interaction [Unknown]
